FAERS Safety Report 12122029 (Version 1)
Quarter: 2016Q1

REPORT INFORMATION
  Report Type: Spontaneous
  Country: US (occurrence: US)
  Receive Date: 20160226
  Receipt Date: 20160226
  Transmission Date: 20160526
  Serious: No
  Sender: FDA-Public Use
  Company Number: US-ALLERGAN-1504574US

PATIENT
  Age: 67 Year
  Sex: Female
  Weight: 53.52 kg

DRUGS (5)
  1. REFRESH OPTIVE ADVANCED [Suspect]
     Active Substance: CARBOXYMETHYLCELLULOSE SODIUM\GLYCERIN\POLYSORBATE 80
     Indication: DRY EYE
     Dosage: 4 GTT, BID
     Route: 047
     Dates: start: 201502, end: 201502
  2. MAXZIDE [Concomitant]
     Active Substance: HYDROCHLOROTHIAZIDE\TRIAMTERENE
     Indication: FLUID RETENTION
     Dosage: 25 MG, QD
  3. REFRESH OPTIVE [Suspect]
     Active Substance: CARBOXYMETHYLCELLULOSE SODIUM\GLYCERIN
     Indication: DRY EYE
     Dosage: UNK
     Dates: start: 20150421
  4. PRILOSEC [Concomitant]
     Active Substance: OMEPRAZOLE MAGNESIUM
     Indication: BARRETT^S OESOPHAGUS
     Dosage: 20 MG, BID
  5. ADVAIR HFA [Concomitant]
     Active Substance: FLUTICASONE PROPIONATE\SALMETEROL XINAFOATE
     Indication: ASTHMA
     Dosage: 15050 DF, BID

REACTIONS (6)
  - Instillation site pain [Unknown]
  - Chalazion [Unknown]
  - Lacrimation increased [Unknown]
  - Eye pain [Not Recovered/Not Resolved]
  - Hordeolum [Unknown]
  - Eye irritation [Unknown]

NARRATIVE: CASE EVENT DATE: 20150225
